FAERS Safety Report 6177432-7 (Version None)
Quarter: 2009Q2

REPORT INFORMATION
  Report Type: 
  Country: None (occurrence: None)
  Receive Date: 20090501
  Receipt Date: 20090501
  Transmission Date: 20091009
  Serious: Yes (Life-Threatening, Hospitalization)
  Sender: FDA-Public Use
  Company Number: None

PATIENT
  Age: 35 Year
  Sex: Female
  Weight: 49.9 kg

DRUGS (13)
  1. WARFARIN SODIUM [Suspect]
     Indication: ANTIPHOSPHOLIPID SYNDROME
     Dosage: 10MG DAILY EXCEPT 5MG MWF
  2. ASACOL [Concomitant]
  3. CELLCEPT [Concomitant]
  4. VALTREX [Concomitant]
  5. MULTI-VITAMIN [Concomitant]
  6. APAP W/ CODEINE [Concomitant]
  7. PLAQUENIL [Concomitant]
  8. MECLIZINE [Concomitant]
  9. HI-CAL PLUS VIT D [Concomitant]
  10. FERROUS GLUC [Concomitant]
  11. AMOXICILLIN [Concomitant]
  12. METHYLPREDNISOLONE 4MG TAB [Concomitant]
  13. LAMICTAL [Concomitant]

REACTIONS (5)
  - CEREBRAL HAEMATOMA [None]
  - HEADACHE [None]
  - INTERNATIONAL NORMALISED RATIO INCREASED [None]
  - NAUSEA [None]
  - VOMITING [None]
